FAERS Safety Report 7999379 (Version 2)
Quarter: 2012Q4

REPORT INFORMATION
  Report Type: 
  Country: US (occurrence: US)
  Receive Date: 20110621
  Receipt Date: 20121009
  Transmission Date: 20130627
  Serious: Yes (Death)
  Sender: FDA-Public Use
  Company Number: US-MYLANLABS-2011S1012058

PATIENT
  Age: 34 Year
  Sex: Female
  Weight: 113.4 kg

DRUGS (8)
  1. FENTANYL TRANSDERMAL SYSTEM [Suspect]
     Indication: PAIN
     Dosage: q3d
     Route: 062
     Dates: start: 200910, end: 20091123
  2. ALPRAZOLAM [Concomitant]
     Indication: ANXIETY
  3. ZOLPIDEM [Concomitant]
     Indication: INSOMNIA
  4. LYRICA [Concomitant]
     Indication: FIBROMYALGIA
  5. DIVALPROEX [Concomitant]
     Indication: MOOD DISORDER DUE TO A GENERAL MEDICAL CONDITION
  6. GEODON [Concomitant]
     Indication: MOOD DISORDER DUE TO A GENERAL MEDICAL CONDITION
  7. PULMICORT [Concomitant]
     Route: 055
  8. PROAIR HFA [Concomitant]
     Route: 055

REACTIONS (6)
  - Toxicity to various agents [Fatal]
  - Overdose [Fatal]
  - Unresponsive to stimuli [None]
  - Pulmonary oedema [None]
  - Polycystic ovaries [None]
  - Vomiting [None]
